FAERS Safety Report 22090591 (Version 2)
Quarter: 2023Q1

REPORT INFORMATION
  Report Type: Spontaneous
  Country: PT (occurrence: PT)
  Receive Date: 20230313
  Receipt Date: 20230317
  Transmission Date: 20230417
  Serious: Yes (Death)
  Sender: FDA-Public Use
  Company Number: PT-BIOMARINQT-PT-2023-149071

PATIENT

DRUGS (1)
  1. VOXZOGO [Suspect]
     Active Substance: VOSORITIDE
     Indication: Osteochondrodysplasia
     Dosage: 0.4 MILLIGRAM
     Route: 058
     Dates: start: 202201, end: 202209

REACTIONS (2)
  - General physical health deterioration [Fatal]
  - Drug ineffective [Unknown]
